FAERS Safety Report 9993597 (Version 1)
Quarter: 2014Q1

REPORT INFORMATION
  Report Type: Spontaneous
  Country: US (occurrence: US)
  Receive Date: 20140310
  Receipt Date: 20140310
  Transmission Date: 20141002
  Serious: Yes (Death)
  Sender: FDA-Public Use
  Company Number: US-MYLANLABS-2014S1004836

PATIENT
  Age: 35 Year
  Sex: Female
  Weight: 97 kg

DRUGS (4)
  1. ALPRAZOLAM [Suspect]
  2. FENTANYL [Suspect]
  3. DIPHENHYDRAMINE [Suspect]
  4. CHLORPROMAZINE [Suspect]

REACTIONS (8)
  - Intentional drug misuse [Fatal]
  - Toxicity to various agents [Fatal]
  - Pulmonary congestion [Fatal]
  - Pulmonary oedema [Fatal]
  - Cardiomegaly [Fatal]
  - Arteriosclerosis coronary artery [Fatal]
  - Hepatomegaly [Fatal]
  - Hepatic steatosis [Fatal]
